FAERS Safety Report 5447789-0 (Version None)
Quarter: 2007Q3

REPORT INFORMATION
  Report Type: 
  Country: None (occurrence: None)
  Receive Date: 20070910
  Receipt Date: 20070905
  Transmission Date: 20080115
  Serious: Yes (Death, Life-Threatening, Hospitalization)
  Sender: FDA-Public Use
  Company Number: CH-ASTRAZENECA-2007PK01843

PATIENT
  Age: 21 Year
  Sex: Female
  Weight: 50 kg

DRUGS (1)
  1. LIDOCAIN [Suspect]
     Route: 019

REACTIONS (4)
  - ACCIDENTAL OVERDOSE [None]
  - APNOEA [None]
  - CARDIAC ARREST [None]
  - EPILEPSY [None]
